FAERS Safety Report 15740176 (Version 1)
Quarter: 2018Q4

REPORT INFORMATION
  Report Type: Spontaneous
  Country: ID (occurrence: ID)
  Receive Date: 20181219
  Receipt Date: 20181219
  Transmission Date: 20190205
  Serious: Yes (Death)
  Sender: FDA-Public Use
  Company Number: ID-JNJFOC-20181211911

PATIENT
  Sex: Female
  Weight: 32.5 kg

DRUGS (5)
  1. SIRTURO [Suspect]
     Active Substance: BEDAQUILINE FUMARATE
     Indication: TUBERCULOSIS
     Dosage: DOSE - 200
     Route: 048
     Dates: start: 20180919, end: 20181113
  2. CYCLOSERINE. [Suspect]
     Active Substance: CYCLOSERINE
     Indication: TUBERCULOSIS
     Dosage: DOSE- 500
     Route: 065
     Dates: start: 20180919, end: 20181113
  3. LEVOFLOXACIN. [Suspect]
     Active Substance: LEVOFLOXACIN
     Indication: TUBERCULOSIS
     Dosage: DOSE 500
     Route: 065
     Dates: start: 20180919, end: 20181113
  4. CLOFAZIMINE [Suspect]
     Active Substance: CLOFAZIMINE
     Indication: TUBERCULOSIS
     Dosage: DOSE 100
     Route: 065
     Dates: start: 20180919, end: 20181113
  5. ETHIONAMIDE [Suspect]
     Active Substance: ETHIONAMIDE
     Indication: TUBERCULOSIS
     Dosage: DOSE- 500
     Route: 065
     Dates: start: 20180919, end: 20181113

REACTIONS (2)
  - Tuberculosis [Fatal]
  - Refraction disorder [Unknown]

NARRATIVE: CASE EVENT DATE: 2018
